FAERS Safety Report 5967565-X (Version None)
Quarter: 2008Q4

REPORT INFORMATION
  Report Type: 
  Country: None (occurrence: None)
  Receive Date: 20081125
  Receipt Date: 20081119
  Transmission Date: 20090506
  Serious: Yes (Life-Threatening)
  Sender: FDA-Public Use
  Company Number: GB-PFIZER INC-2008098753

PATIENT
  Age: 33 Year
  Sex: Female

DRUGS (1)
  1. CHAMPIX [Suspect]
     Indication: SMOKING CESSATION THERAPY
     Dosage: TEXT:0.5MG
     Route: 048
     Dates: end: 20081023

REACTIONS (7)
  - ABNORMAL DREAMS [None]
  - DEPRESSED MOOD [None]
  - EATING DISORDER [None]
  - HEADACHE [None]
  - INSOMNIA [None]
  - NAUSEA [None]
  - NEGATIVE THOUGHTS [None]
